FAERS Safety Report 21662312 (Version 4)
Quarter: 2023Q2

REPORT INFORMATION
  Report Type: Report from Study
  Country: PE (occurrence: PE)
  Receive Date: 20221130
  Receipt Date: 20230519
  Transmission Date: 20230721
  Serious: Yes (Other)
  Sender: FDA-Public Use
  Company Number: PE-002147023-NVSC2022PE245152

PATIENT
  Age: 71 Year
  Sex: Female

DRUGS (2)
  1. KISQALI [Suspect]
     Active Substance: RIBOCICLIB
     Indication: Breast cancer metastatic
     Dosage: 600 MG, QD (THROUGH THE MOUTH)
     Route: 048
     Dates: start: 20220706
  2. TAMOXIFEN [Suspect]
     Active Substance: TAMOXIFEN
     Indication: Product used for unknown indication
     Dosage: UNK
     Route: 065

REACTIONS (12)
  - Vitreous detachment [Unknown]
  - Pain [Unknown]
  - Injury [Unknown]
  - Visual impairment [Unknown]
  - Tumour marker increased [Recovered/Resolved]
  - Scratch [Unknown]
  - Eye pruritus [Unknown]
  - Erythema [Unknown]
  - Pruritus [Unknown]
  - Dry eye [Unknown]
  - Haemoglobin decreased [Recovering/Resolving]
  - Dry skin [Unknown]

NARRATIVE: CASE EVENT DATE: 20221019
